FAERS Safety Report 11768995 (Version 1)
Quarter: 2015Q4

REPORT INFORMATION
  Report Type: Spontaneous
  Country: US (occurrence: US)
  Receive Date: 20151123
  Receipt Date: 20151123
  Transmission Date: 20160304
  Serious: No
  Sender: FDA-Public Use
  Company Number: US-JNJFOC-20150926292

PATIENT
  Age: 42 Year
  Sex: Male
  Weight: 95.26 kg

DRUGS (3)
  1. CHILDRENS ZYRTEC [Suspect]
     Active Substance: CETIRIZINE HYDROCHLORIDE
     Indication: THROAT IRRITATION
     Dosage: 2 PERFECT MEASURE SPOONS
     Route: 048
     Dates: start: 20150928, end: 20150928
  2. CHILDRENS ZYRTEC [Suspect]
     Active Substance: CETIRIZINE HYDROCHLORIDE
     Indication: SNEEZING
     Dosage: 2 PERFECT MEASURE SPOONS
     Route: 048
     Dates: start: 20150928, end: 20150928
  3. CHILDRENS ZYRTEC [Suspect]
     Active Substance: CETIRIZINE HYDROCHLORIDE
     Indication: RHINORRHOEA
     Dosage: 2 PERFECT MEASURE SPOONS
     Route: 048
     Dates: start: 20150928, end: 20150928

REACTIONS (1)
  - Expired product administered [Unknown]

NARRATIVE: CASE EVENT DATE: 20150928
